FAERS Safety Report 4885208-3 (Version None)
Quarter: 2005Q4

REPORT INFORMATION
  Report Type: 
  Country: None (occurrence: None)
  Receive Date: 20051214
  Receipt Date: 20051006
  Transmission Date: 20060501
  Serious: No
  Sender: FDA-Public Use
  Company Number: S05-USA-04560-01

PATIENT
  Age: 45 Year
  Sex: Female

DRUGS (3)
  1. CAMPRAL (ACAMPROSTATE CALCIUM) [Suspect]
     Indication: ALCOHOLISM
     Dosage: 333 MG TID PO
     Route: 048
     Dates: start: 20050101, end: 20050101
  2. CAMPRAL (ACAMPROSTATE CALCIUM) [Suspect]
     Indication: ALCOHOLISM
     Dosage: 333 MG BID PO
     Route: 048
     Dates: start: 20050101, end: 20050101
  3. TRAZODONE [Concomitant]

REACTIONS (1)
  - MUSCLE SPASMS [None]
